FAERS Safety Report 4745158-X (Version None)
Quarter: 2005Q3

REPORT INFORMATION
  Report Type: 
  Country: None (occurrence: None)
  Receive Date: 20050815
  Receipt Date: 20050802
  Transmission Date: 20060218
  Serious: Yes (Life-Threatening)
  Sender: FDA-Public Use
  Company Number: JP-ROCHE-412578

PATIENT
  Age: 70 Year
  Sex: Female

DRUGS (1)
  1. PANALDINE [Suspect]
     Dosage: 2ND INDICATION: ANGINA PECTORIS.
     Route: 048

REACTIONS (1)
  - TRACHEAL STENOSIS [None]
